FAERS Safety Report 8761817 (Version 5)
Quarter: 2013Q4

REPORT INFORMATION
  Report Type: Spontaneous
  Country: ES (occurrence: None)
  Receive Date: 20120823
  Receipt Date: 20131112
  Transmission Date: 20140711
  Serious: Yes (Other)
  Sender: FDA-Public Use
  Company Number: DSA_59037_2012

PATIENT
  Age: 31 Year
  Sex: Female

DRUGS (11)
  1. METRONIDAZOLE [Suspect]
     Indication: ECZEMA
     Dosage: TO NOT CONTINUING?
     Dates: start: 20110928
  2. METRONIDAZOLE [Suspect]
     Indication: ECZEMA
     Dosage: TO NOT CONTINUING?
     Dates: start: 20110928
  3. QUETIAPINE [Suspect]
     Indication: ABNORMAL BEHAVIOUR
     Dates: start: 20110921, end: 20111004
  4. QUETIAPINE [Suspect]
     Indication: ABNORMAL BEHAVIOUR
     Dates: start: 20110921, end: 20111004
  5. SERTRALINE (SERTRALINE) (SERTRALINE) [Concomitant]
  6. CLONAZEPAM (CLONAZEPAM) (CLONAZEPAM) [Concomitant]
  7. DIAZEPAM (DIAZEPAM) (DIAZEPAM) [Concomitant]
  8. OMEPRAZOLE (OMEPRAZOLE) (OMEPRAZOLE) [Concomitant]
  9. IBUPROFEN (IBUPROFEN) (IBUPROFEN) [Concomitant]
  10. PARACETAMOL (PARACETAMOL) (PARACETAMOL) [Concomitant]
  11. AMOXICILLIN (AMOXICILLIN) (AMOXICILLIN) [Concomitant]

REACTIONS (11)
  - Parkinsonism [None]
  - Drug interaction [None]
  - Vomiting [None]
  - Muscle rigidity [None]
  - Cogwheel rigidity [None]
  - Drooling [None]
  - Amimia [None]
  - Bradykinesia [None]
  - Anxiety [None]
  - Pyrexia [None]
  - Musculoskeletal stiffness [None]
